FAERS Safety Report 9771330 (Version 2)
Quarter: 2014Q1

REPORT INFORMATION
  Report Type: Spontaneous
  Country: IT (occurrence: IT)
  Receive Date: 20131218
  Receipt Date: 20140128
  Transmission Date: 20141002
  Serious: Yes (Other)
  Sender: FDA-Public Use
  Company Number: PHHY2013IT147695

PATIENT
  Age: 51 Year
  Sex: Female
  Weight: 63 kg

DRUGS (4)
  1. COMBISARTAN [Suspect]
     Indication: HYPERTENSION
     Dosage: 1 DF (160 MG VALS AND 25 MG HYDRO), A DAY
     Route: 048
     Dates: start: 20131109, end: 20131110
  2. TENORMIN [Concomitant]
     Indication: HYPERTENSION
     Dosage: 100 MG, UNK
     Route: 048
     Dates: start: 20130916, end: 20131210
  3. SEROQUEL [Concomitant]
     Indication: PERSONALITY DISORDER
     Dosage: UNK UKN, UNK
     Route: 048
  4. SEROQUEL [Concomitant]
     Dosage: 300 MG
     Route: 048
     Dates: start: 20130916, end: 20131210

REACTIONS (2)
  - Malaise [Recovered/Resolved]
  - Hypotension [Recovered/Resolved]
